FAERS Safety Report 5768543-6 (Version None)
Quarter: 2008Q2

REPORT INFORMATION
  Report Type: 
  Country: None (occurrence: None)
  Receive Date: 20080612
  Receipt Date: 20080307
  Transmission Date: 20081010
  Serious: No
  Sender: FDA-Public Use
  Company Number: US-ABBOTT-08P-163-0441463-00

PATIENT
  Sex: Male

DRUGS (6)
  1. HUMIRA [Suspect]
     Indication: RHEUMATOID ARTHRITIS
     Route: 058
     Dates: start: 20080201, end: 20080201
  2. METHOTREXATE [Concomitant]
     Indication: RHEUMATOID ARTHRITIS
  3. VALPROATE SODIUM [Concomitant]
     Indication: CONVULSION
  4. CLONIDINE [Concomitant]
     Indication: HYPERTENSION
  5. TIAGABINE HYDROCHLORIDE [Concomitant]
     Indication: CONVULSION
  6. ARIPIPRAZOLE [Concomitant]
     Indication: BIPOLAR DISORDER

REACTIONS (3)
  - AGGRESSION [None]
  - BELLIGERENCE [None]
  - MANIA [None]
